FAERS Safety Report 4706413-2 (Version None)
Quarter: 2005Q2

REPORT INFORMATION
  Report Type: 
  Country: None (occurrence: None)
  Receive Date: 20050629
  Receipt Date: 20050407
  Transmission Date: 20051028
  Serious: No
  Sender: FDA-Public Use
  Company Number: 05P-163-0296881-00

PATIENT
  Age: 39 Year
  Sex: Female

DRUGS (11)
  1. HUMIRA [Suspect]
     Indication: ANKYLOSING SPONDYLITIS
     Dosage: 40 MG, 1 IN 2 WK, SUBCUTANEOUS
     Route: 058
     Dates: start: 20041001
  2. VOLTAREN [Concomitant]
  3. ESOMEPRAZOLE [Concomitant]
  4. TEMOCAPRIL HYDROCHLORIDE [Concomitant]
  5. LAMOTRIGINE [Concomitant]
  6. ZONISAMIDE [Concomitant]
  7. CITICOLINE SODIUM [Concomitant]
  8. BUSPIRONE HCL [Concomitant]
  9. CLONAZEPAM [Concomitant]
  10. AMLODIPINE BESYLATE [Concomitant]
  11. NITROGLYCERIN [Concomitant]

REACTIONS (1)
  - INJECTION SITE IRRITATION [None]
